FAERS Safety Report 20462989 (Version 5)
Quarter: 2022Q1

REPORT INFORMATION
  Report Type: Report from Study
  Country: NZ (occurrence: NZ)
  Receive Date: 20220211
  Receipt Date: 20220316
  Transmission Date: 20220423
  Serious: Yes (Hospitalization)
  Sender: FDA-Public Use
  Company Number: NZ-CELGENE-NZL-20220201290

PATIENT
  Sex: Female

DRUGS (4)
  1. OZANIMOD [Suspect]
     Active Substance: OZANIMOD
     Indication: Relapsing multiple sclerosis
     Dosage: 1 MILLIGRAM
     Route: 048
     Dates: start: 20161028
  2. DEPO-PROVERA [Concomitant]
     Active Substance: MEDROXYPROGESTERONE ACETATE
     Indication: Contraception
     Dosage: 150 MILLIGRAM
     Route: 030
     Dates: start: 20180911
  3. FLUTICASONE PROPIONATE [Concomitant]
     Active Substance: FLUTICASONE PROPIONATE
     Indication: Nasal polyps
     Dosage: 100 MICROGRAM
     Route: 045
     Dates: start: 20180911
  4. ESCITALOPRAM [Concomitant]
     Active Substance: ESCITALOPRAM OXALATE
     Indication: Anxiety
     Dosage: 10 MILLIGRAM
     Route: 048
     Dates: start: 20190403

REACTIONS (1)
  - Appendicitis [Recovered/Resolved]

NARRATIVE: CASE EVENT DATE: 20220202
